FAERS Safety Report 9415349 (Version 1)
Quarter: 2013Q3

REPORT INFORMATION
  Report Type: Spontaneous
  Country: US (occurrence: US)
  Receive Date: 20130723
  Receipt Date: 20130723
  Transmission Date: 20140515
  Serious: Yes (Hospitalization)
  Sender: FDA-Public Use
  Company Number: US-PFIZER INC-2013215016

PATIENT
  Age: 52 Year
  Sex: Female
  Weight: 78.46 kg

DRUGS (32)
  1. CHANTIX [Suspect]
     Indication: SMOKING CESSATION THERAPY
     Dosage: 0.5 MG, 1X/DAY
     Route: 048
  2. CHANTIX [Suspect]
     Dosage: 0.5 MG, 1X/DAY
     Route: 048
     Dates: start: 20130708
  3. CHANTIX [Suspect]
     Dosage: 1 MG, 2X/DAY
     Route: 048
  4. VITAMIN B-COMPLEX [Concomitant]
     Dosage: UNK
  5. SUCRALFATE [Concomitant]
     Dosage: UNK
  6. PREMARIN [Concomitant]
     Indication: OESTROGEN THERAPY
     Dosage: UNK
  7. PREMARIN [Concomitant]
     Indication: HORMONE LEVEL ABNORMAL
  8. POLYETHYLENE GLYCOL [Concomitant]
     Dosage: UNK
  9. VITAMIN E [Concomitant]
     Dosage: UNK
  10. CALCIUM [Concomitant]
     Dosage: UNK
  11. PROMETHAZINE DM [Concomitant]
     Dosage: UNK
  12. DILAUDID [Concomitant]
     Dosage: UNK
  13. PAROXETINE [Concomitant]
     Dosage: UNK
  14. CARISOPRODOL [Concomitant]
     Dosage: UNK
  15. RISPERIDONE [Concomitant]
     Dosage: UNK
  16. METFORMIN [Concomitant]
     Indication: DIABETES MELLITUS
     Dosage: UNK
     Route: 048
  17. MELATONIN [Concomitant]
     Dosage: UNK
  18. NITROSTAT [Concomitant]
     Dosage: UNK
  19. HYDROCODONE W/ACETAMINOPHEN [Concomitant]
     Dosage: UNK
  20. ASPIRIN [Concomitant]
     Dosage: UNK
  21. LEVOTHYROXINE [Concomitant]
     Dosage: UNK
  22. SUMAVEL [Concomitant]
     Dosage: UNK
  23. DICYCLOMINE [Concomitant]
     Dosage: UNK
  24. METOPROLOL ER [Concomitant]
     Dosage: UNK
  25. FENOFIBRATE [Concomitant]
     Dosage: UNK
  26. LEVETIRACETAM [Concomitant]
     Dosage: UNK
  27. MECLIZINE [Concomitant]
     Dosage: UNK
  28. DIAZEPAM [Concomitant]
     Dosage: UNK
  29. ROPINIROLE [Concomitant]
     Dosage: UNK
  30. TOPAMAX [Concomitant]
     Dosage: UNK
  31. HYDROXYZINE [Concomitant]
     Dosage: UNK
  32. DEXILANT [Concomitant]
     Dosage: UNK

REACTIONS (6)
  - Pneumonia [Unknown]
  - Chronic obstructive pulmonary disease [Unknown]
  - Dyspnoea [Unknown]
  - Chest discomfort [Unknown]
  - Tobacco user [Not Recovered/Not Resolved]
  - Anxiety [Not Recovered/Not Resolved]
